FAERS Safety Report 4497600-X (Version None)
Quarter: 2004Q4

REPORT INFORMATION
  Report Type: 
  Country: None (occurrence: None)
  Receive Date: 20041104
  Receipt Date: 20041020
  Transmission Date: 20050328
  Serious: Yes (Hospitalization)
  Sender: FDA-Public Use
  Company Number: 2004-0007641

PATIENT
  Age: 43 Year
  Sex: Male

DRUGS (5)
  1. VIREAD [Suspect]
     Indication: HIV INFECTION
     Dosage: 300 MG, 1 IN 1 D, ORAL
     Route: 048
     Dates: start: 20020915, end: 20040817
  2. BACTRIM [Concomitant]
  3. LEXOMIL (BROMAZEPAM) [Concomitant]
  4. VIDEX [Concomitant]
  5. KALETRA [Concomitant]

REACTIONS (12)
  - AMINOACIDURIA [None]
  - BLOOD GLUCOSE INCREASED [None]
  - CACHEXIA [None]
  - GENERAL PHYSICAL HEALTH DETERIORATION [None]
  - HYPOKALAEMIA [None]
  - METABOLIC ACIDOSIS [None]
  - POLYDIPSIA [None]
  - POLYURIA [None]
  - PROTEIN URINE PRESENT [None]
  - RENAL FAILURE [None]
  - RENAL TUBULAR DISORDER [None]
  - WEIGHT DECREASED [None]
